FAERS Safety Report 9174269 (Version 1)
Quarter: 2013Q1

REPORT INFORMATION
  Report Type: Spontaneous
  Country: GR (occurrence: GR)
  Receive Date: 20130320
  Receipt Date: 20130320
  Transmission Date: 20140127
  Serious: Yes (Other)
  Sender: FDA-Public Use
  Company Number: GR-PFIZER INC-2013088281

PATIENT
  Age: 78 Year
  Sex: Female
  Weight: 71 kg

DRUGS (3)
  1. TOVIAZ [Suspect]
     Dosage: 8 MG DAILY
     Route: 048
     Dates: start: 20120918
  2. KARVEA [Concomitant]
     Dosage: 150 MG, UNK
     Route: 048
  3. ARCOXIA [Concomitant]
     Indication: PAIN
     Dosage: 30 MG, UNK
     Route: 048

REACTIONS (2)
  - Dysphagia [Unknown]
  - Dry mouth [Unknown]
